FAERS Safety Report 25223111 (Version 1)
Quarter: 2025Q2

REPORT INFORMATION
  Report Type: Spontaneous
  Country: AT (occurrence: AT)
  Receive Date: 20250422
  Receipt Date: 20250422
  Transmission Date: 20250717
  Serious: Yes (Other)
  Sender: FRESENIUS KABI
  Company Number: None

PATIENT
  Age: 4 Year
  Sex: Female
  Weight: 15.9 kg

DRUGS (6)
  1. GEMCITABINE HYDROCHLORIDE [Suspect]
     Active Substance: GEMCITABINE HYDROCHLORIDE
     Indication: Product used for unknown indication
     Dates: start: 20241125
  2. ABEMACICLIB [Concomitant]
     Active Substance: ABEMACICLIB
     Indication: Product used for unknown indication
     Dates: start: 20241125
  3. ABEMACICLIB [Concomitant]
     Active Substance: ABEMACICLIB
     Dates: start: 20250123
  4. THALIDOMIDE [Concomitant]
     Active Substance: THALIDOMIDE
     Indication: Pain in extremity
     Dates: start: 20230918
  5. THALIDOMIDE [Concomitant]
     Active Substance: THALIDOMIDE
     Dates: start: 20250107
  6. FENOFIBRATE [Concomitant]
     Active Substance: FENOFIBRATE
     Indication: Product used for unknown indication
     Dates: start: 20230918

REACTIONS (1)
  - Eyelid ptosis [Unknown]

NARRATIVE: CASE EVENT DATE: 20250321
